FAERS Safety Report 8120901-0 (Version None)
Quarter: 2012Q1

REPORT INFORMATION
  Report Type: 
  Country: None (occurrence: None)
  Receive Date: 20120208
  Receipt Date: 20120130
  Transmission Date: 20120608
  Serious: Yes (Other)
  Sender: FDA-Public Use
  Company Number: US-ELI_LILLY_AND_COMPANY-US201102002601

PATIENT
  Age: 32 Year
  Sex: Female

DRUGS (7)
  1. CYMBALTA [Suspect]
     Indication: DEPRESSION
     Dosage: 20 MG, UNKNOWN
     Dates: start: 20100101, end: 20100601
  2. ABILIFY [Concomitant]
     Dosage: UNK, EACH EVENING
  3. CYMBALTA [Suspect]
     Dosage: 30 MG, QD
     Dates: start: 20111101
  4. CYMBALTA [Suspect]
     Dosage: 30 MG, DAILY (1/D)
     Dates: start: 20100601
  5. CYMBALTA [Suspect]
     Dosage: 20 MG, DAILY (1/D)
     Dates: start: 20110401, end: 20110501
  6. CYMBALTA [Suspect]
     Dosage: 20 MG, QD
     Dates: start: 20120125
  7. CYMBALTA [Suspect]
     Dosage: 30 MG, QD
     Dates: start: 20120129

REACTIONS (16)
  - HEART RATE INCREASED [None]
  - DRUG WITHDRAWAL SYNDROME [None]
  - OVARIAN CYST [None]
  - BIPOLAR DISORDER [None]
  - MOOD SWINGS [None]
  - PALPITATIONS [None]
  - ANXIETY [None]
  - DRUG INEFFECTIVE [None]
  - UTERINE CYST [None]
  - ANGER [None]
  - INSOMNIA [None]
  - POOR QUALITY SLEEP [None]
  - ABDOMINAL PAIN [None]
  - NERVOUSNESS [None]
  - DEPRESSED MOOD [None]
  - FEELING GUILTY [None]
